FAERS Safety Report 5537984-4 (Version None)
Quarter: 2007Q4

REPORT INFORMATION
  Report Type: 
  Country: None (occurrence: None)
  Receive Date: 20071207
  Receipt Date: 20071127
  Transmission Date: 20080405
  Serious: Yes (Other)
  Sender: FDA-Public Use
  Company Number: US-PFIZER INC-2007100571

PATIENT
  Sex: Female
  Weight: 65.8 kg

DRUGS (6)
  1. LYRICA [Suspect]
     Indication: NEURALGIA
     Dates: start: 20071120, end: 20071120
  2. DARVOCET [Concomitant]
  3. PROMETHAZINE [Concomitant]
  4. FLEXERIL [Concomitant]
  5. ALL OTHER THERAPEUTIC PRODUCTS [Concomitant]
  6. GABAPENTIN [Concomitant]
     Indication: NEURALGIA

REACTIONS (6)
  - ACTIVITIES OF DAILY LIVING IMPAIRED [None]
  - DIZZINESS [None]
  - DRUG INEFFECTIVE [None]
  - FEELING ABNORMAL [None]
  - HANGOVER [None]
  - NAUSEA [None]
